FAERS Safety Report 25973909 (Version 1)
Quarter: 2025Q4

REPORT INFORMATION
  Report Type: Spontaneous
  Country: EU (occurrence: EU)
  Receive Date: 20251029
  Receipt Date: 20251029
  Transmission Date: 20260118
  Serious: Yes (Other)
  Sender: MYLAN
  Company Number: EU-MYLANLABS-2025M1090841

PATIENT
  Age: 10 Year
  Sex: Male

DRUGS (4)
  1. PREDNISONE [Suspect]
     Active Substance: PREDNISONE
     Indication: Vasculitis
     Dosage: 2 MILLIGRAM/KILOGRAM, QD
  2. PREDNISONE [Suspect]
     Active Substance: PREDNISONE
     Dosage: 0.3 MILLIGRAM/KILOGRAM, QD
  3. METHOTREXATE [Suspect]
     Active Substance: METHOTREXATE
     Indication: Vasculitis
     Dosage: UNK
  4. RITUXIMAB [Concomitant]
     Active Substance: RITUXIMAB
     Indication: Vasculitis
     Dosage: 375 MILLIGRAM/SQ. METER, QW

REACTIONS (3)
  - Rebound effect [Recovered/Resolved]
  - Vasculitis [Recovered/Resolved]
  - Treatment failure [Unknown]
